FAERS Safety Report 6213806-3 (Version None)
Quarter: 2009Q2

REPORT INFORMATION
  Report Type: 
  Country: None (occurrence: None)
  Receive Date: 20090602
  Receipt Date: 20090522
  Transmission Date: 20091009
  Serious: Yes (Other)
  Sender: FDA-Public Use
  Company Number: 235812K09USA

PATIENT
  Age: 50 Year
  Sex: Female

DRUGS (2)
  1. REBIF [Suspect]
     Indication: MULTIPLE SCLEROSIS
     Dosage: 44 MCG, 3 IN 1 WEEKS, SUBCUTANEOUS
     Route: 058
     Dates: start: 20060808, end: 20090302
  2. NEURONTIN [Concomitant]

REACTIONS (4)
  - FATIGUE [None]
  - IMPLANT SITE SCAR [None]
  - INTRAOCULAR LENS COMPLICATION [None]
  - PAIN [None]
